FAERS Safety Report 6659620-6 (Version None)
Quarter: 2010Q1

REPORT INFORMATION
  Report Type: 
  Country: None (occurrence: None)
  Receive Date: 20100330
  Receipt Date: 20100318
  Transmission Date: 20100710
  Serious: Yes (Other)
  Sender: FDA-Public Use
  Company Number: US-PFIZER INC-2010036047

PATIENT
  Sex: Female
  Weight: 111 kg

DRUGS (10)
  1. NEURONTIN [Suspect]
     Indication: RESTLESS LEGS SYNDROME
     Dosage: 300 MG, 3X/DAY
     Dates: start: 20000101
  2. NEURONTIN [Suspect]
     Indication: TREMOR
     Dosage: 100 MG, 3X/DAY
  3. NEURONTIN [Suspect]
     Indication: PAIN
     Dosage: 600 MG, 4X/DAY
     Route: 048
     Dates: start: 20090827, end: 20100115
  4. SEROQUEL [Concomitant]
     Dosage: 300 MG, 1X/DAY
     Route: 048
  5. ZOLOFT [Concomitant]
     Dosage: 100 MG, 2X/DAY
     Route: 048
  6. INSULIN DETEMIR [Concomitant]
     Indication: DIABETES MELLITUS
     Dosage: 50 IU, 2X/DAY
  7. NOVOLOG [Concomitant]
     Indication: DIABETES MELLITUS
     Dosage: 70/30
  8. NEXIUM [Concomitant]
     Dosage: 40 MG, 1X/DAY
     Route: 048
  9. LASIX [Concomitant]
     Dosage: 20 MG, 2X/DAY
     Route: 048
  10. XANAX [Concomitant]
     Dosage: 2 MG, 1X/DAY
     Route: 048

REACTIONS (9)
  - BEDRIDDEN [None]
  - BLOOD GLUCOSE INCREASED [None]
  - CATATONIA [None]
  - CHEST PAIN [None]
  - COUGH [None]
  - DEPRESSION [None]
  - SWELLING [None]
  - THINKING ABNORMAL [None]
  - VISUAL IMPAIRMENT [None]
